FAERS Safety Report 9383559 (Version 1)
Quarter: 2013Q3

REPORT INFORMATION
  Report Type: Spontaneous
  Country: US (occurrence: US)
  Receive Date: 20130704
  Receipt Date: 20130704
  Transmission Date: 20140515
  Serious: No
  Sender: FDA-Public Use
  Company Number: US-PFIZER INC-2013196188

PATIENT
  Age: 44 Year
  Sex: Female
  Weight: 37.64 kg

DRUGS (4)
  1. LYRICA [Suspect]
     Indication: NEURALGIA
     Dosage: 25 MG, 2X/DAY
     Route: 048
  2. LYRICA [Suspect]
     Indication: NEUROPATHY PERIPHERAL
  3. KEPPRA [Concomitant]
     Indication: EPILEPSY
     Dosage: UNK
  4. MULTIVITAMINS [Concomitant]
     Dosage: UNKNOWN
     Route: 065

REACTIONS (6)
  - Incorrect dose administered [Unknown]
  - Inappropriate schedule of drug administration [Unknown]
  - Drug intolerance [Unknown]
  - Abdominal discomfort [Unknown]
  - Anger [Unknown]
  - Anxiety [Unknown]
